FAERS Safety Report 22066059 (Version 1)
Quarter: 2023Q1

REPORT INFORMATION
  Report Type: Spontaneous
  Country: CN (occurrence: CN)
  Receive Date: 20230306
  Receipt Date: 20230306
  Transmission Date: 20230417
  Serious: Yes (Death, Other)
  Sender: FDA-Public Use
  Company Number: CN-SA-2023SA070156

PATIENT
  Age: 61 Year
  Sex: Male

DRUGS (12)
  1. DEXAMETHASONE [Suspect]
     Active Substance: DEXAMETHASONE
     Indication: Prophylaxis against graft versus host disease
     Dosage: 40 MG/KG
     Dates: start: 202204
  2. METHOTREXATE [Suspect]
     Active Substance: METHOTREXATE
     Indication: Prophylaxis against graft versus host disease
     Dosage: 5 MG/M2 (ON DAYS +3 AND +6D)
     Dates: start: 202204
  3. FLUDARABINE PHOSPHATE [Suspect]
     Active Substance: FLUDARABINE PHOSPHATE
     Indication: Bone marrow conditioning regimen
     Dosage: 30 MG/M2 (ON DAY -7 TO -2)
     Dates: start: 202203
  4. ANTI-THYMOCYTE GLOBULIN (RABBIT) NOS [Suspect]
     Active Substance: LAPINE T-LYMPHOCYTE IMMUNE GLOBULIN
     Indication: Prophylaxis against graft versus host disease
     Dosage: 2 MG/KG
     Dates: start: 202203, end: 202203
  5. CYCLOPHOSPHAMIDE [Suspect]
     Active Substance: CYCLOPHOSPHAMIDE
     Indication: Prophylaxis against graft versus host disease
     Dosage: 30 MG/KG (ON DAYS +3 AND +4)
     Dates: start: 202204
  6. RUXOLITINIB [Suspect]
     Active Substance: RUXOLITINIB
     Indication: Prophylaxis against graft versus host disease
     Dosage: 5 MG, BID (ON DAYS -1 TO +50)
     Dates: start: 202203
  7. RUXOLITINIB [Suspect]
     Active Substance: RUXOLITINIB
     Dosage: 2.5 MG, BID (DAYS +51 TO +100)
     Dates: start: 202204
  8. RUXOLITINIB [Suspect]
     Active Substance: RUXOLITINIB
     Dosage: 2.5 MG, BID (+101 TO +180)
     Dates: start: 202204
  9. MYFORTIC [Suspect]
     Active Substance: MYCOPHENOLATE SODIUM
     Indication: Prophylaxis against graft versus host disease
     Dosage: 720 MG, BID ( ON DAYS +5 TO +34)
     Dates: start: 202204
  10. CYCLOSPORINE [Suspect]
     Active Substance: CYCLOSPORINE
     Indication: Prophylaxis against graft versus host disease
     Dosage: 15 MG/KG, QD
     Dates: start: 202204
  11. BUSULFAN [Suspect]
     Active Substance: BUSULFAN
     Indication: Immunochemotherapy
     Dosage: 3.2 MG/M2 (ON DAYS -7, -6)
     Dates: start: 202203
  12. MELPHALAN [Suspect]
     Active Substance: MELPHALAN
     Indication: Immunochemotherapy
     Dosage: 100 MG/M2 (ON DAY -2)
     Dates: start: 202203

REACTIONS (3)
  - Septic shock [Fatal]
  - Pneumonia fungal [Fatal]
  - Off label use [Unknown]

NARRATIVE: CASE EVENT DATE: 20220101
